FAERS Safety Report 7757167-7 (Version None)
Quarter: 2011Q3

REPORT INFORMATION
  Report Type: 
  Country: None (occurrence: None)
  Receive Date: 20110916
  Receipt Date: 20110905
  Transmission Date: 20111222
  Serious: Yes (Other)
  Sender: FDA-Public Use
  Company Number: AR-GENENTECH-324187

PATIENT
  Sex: Female

DRUGS (1)
  1. XOLAIR [Suspect]
     Indication: ASTHMA
     Dosage: 1 AMP, Q15D
     Dates: start: 20110601

REACTIONS (4)
  - PHLEBITIS [None]
  - ALOPECIA [None]
  - INJECTION SITE SWELLING [None]
  - NEUROPATHY PERIPHERAL [None]
